FAERS Safety Report 7913120 (Version 5)
Quarter: 2012Q4

REPORT INFORMATION
  Report Type: Report from Study
  Country: DE (occurrence: DE)
  Receive Date: 20110425
  Receipt Date: 20121004
  Transmission Date: 20130627
  Serious: Yes (Life-Threatening, Hospitalization)
  Sender: FDA-Public Use
  Company Number: DE-ROCHE-771851

PATIENT
  Age: 76 Year
  Sex: Female
  Weight: 62 kg

DRUGS (3)
  1. AVASTIN [Suspect]
     Indication: BREAST CANCER
     Dosage: DOSE AS PER PROTOCOL, DATE OF LAST DOSE PRIOR TO SAE 16 MARCH 2011
     Route: 065
  2. XELODA [Suspect]
     Indication: BREAST CANCER
     Dosage: DPSE AS PER PROTOCOL, DATE OF LAST DOSE PRIOR TO SAE 21 MARCH 2011, DOSE: 2X1500MG/1 MG
     Route: 065
  3. VINORELBINE TARTRATE [Suspect]
     Indication: BREAST CANCER
     Dosage: DOSE AS PER PROTOCOL, DATE OF LAST DOSE PRIOR TO SAE 16 MARCH 2011
     Route: 042

REACTIONS (1)
  - Cerebral haemorrhage [Recovered/Resolved]
